FAERS Safety Report 8906232 (Version 1)
Quarter: 2012Q4

REPORT INFORMATION
  Report Type: Spontaneous
  Country: US (occurrence: None)
  Receive Date: 20121108
  Receipt Date: 20121108
  Transmission Date: 20130627
  Serious: Yes (Other)
  Sender: FDA-Public Use
  Company Number: DSA_55237_2012

PATIENT
  Sex: Female

DRUGS (1)
  1. XENAZINE (NOT SPECIFIED) [Suspect]
     Dosage: Morning
     Route: 048
     Dates: start: 20111007

REACTIONS (5)
  - Depression [None]
  - Crying [None]
  - Fall [None]
  - Asthenia [None]
  - Somnolence [None]
